FAERS Safety Report 7953664-X (Version None)
Quarter: 2011Q4

REPORT INFORMATION
  Report Type: 
  Country: None (occurrence: None)
  Receive Date: 20111202
  Receipt Date: 20111118
  Transmission Date: 20120403
  Serious: Yes (Hospitalization, Disabling, Other)
  Sender: FDA-Public Use
  Company Number: US-TYCO HEALTHCARE/MALLINCKRODT-T201101906

PATIENT
  Sex: Male

DRUGS (8)
  1. OMNISCAN [Suspect]
     Dosage: UNK
     Dates: start: 20040923
  2. DIOVAN [Concomitant]
     Indication: BLOOD PRESSURE MANAGEMENT
     Dosage: UNK
     Dates: start: 19910101
  3. OPTIMARK [Suspect]
     Dosage: UNK
     Dates: start: 20051215, end: 20051215
  4. OPTIMARK [Suspect]
     Indication: NUCLEAR MAGNETIC RESONANCE IMAGING
     Dosage: UNK
     Dates: start: 20011101
  5. OMNISCAN [Suspect]
     Indication: NUCLEAR MAGNETIC RESONANCE IMAGING
     Dosage: UNK
     Dates: start: 19980601
  6. MINOXIDIL [Concomitant]
     Indication: BLOOD PRESSURE MANAGEMENT
     Dosage: UNK
     Dates: start: 19910101
  7. RENAL SOFTGEL [Concomitant]
     Dosage: UNK
     Dates: start: 20041001
  8. SIMVASTATIN [Concomitant]
     Indication: BLOOD CHOLESTEROL INCREASED
     Dosage: UNK
     Dates: start: 19910101

REACTIONS (20)
  - ACTIVITIES OF DAILY LIVING IMPAIRED [None]
  - SALIVARY GLAND OPERATION [None]
  - ASTHENIA [None]
  - MENISCUS LESION [None]
  - NEPHROGENIC SYSTEMIC FIBROSIS [None]
  - SKIN CANCER [None]
  - BASAL CELL CARCINOMA [None]
  - PROSTATE CANCER [None]
  - CYST [None]
  - ARTHRITIS [None]
  - TRANSPLANT FAILURE [None]
  - GAIT DISTURBANCE [None]
  - NEURODERMATITIS [None]
  - ACTINIC KERATOSIS [None]
  - CARDIAC PACEMAKER INSERTION [None]
  - INFECTION [None]
  - NODULE [None]
  - STRESS [None]
  - SQUAMOUS CELL CARCINOMA [None]
  - CATHETER PLACEMENT [None]
